FAERS Safety Report 5742101-1 (Version None)
Quarter: 2008Q2

REPORT INFORMATION
  Report Type: 
  Country: None (occurrence: None)
  Receive Date: 20080514
  Receipt Date: 20080514
  Transmission Date: 20081010
  Serious: No
  Sender: FDA-Public Use
  Company Number: None

PATIENT
  Age: 5 Year
  Sex: Male
  Weight: 18.5975 kg

DRUGS (3)
  1. SINGULAIR [Suspect]
     Indication: ASTHMA
     Dosage: 4MG ONCE DAILY PO
     Route: 048
     Dates: start: 20080415, end: 20080513
  2. SINGULAIR [Suspect]
     Indication: ECZEMA
     Dosage: 4MG ONCE DAILY PO
     Route: 048
     Dates: start: 20080415, end: 20080513
  3. SINGULAIR [Suspect]
     Indication: MULTIPLE ALLERGIES
     Dosage: 4MG ONCE DAILY PO
     Route: 048
     Dates: start: 20080415, end: 20080513

REACTIONS (4)
  - DISTURBANCE IN ATTENTION [None]
  - GENERALISED ANXIETY DISORDER [None]
  - INSOMNIA [None]
  - SENSORY DISTURBANCE [None]
